FAERS Safety Report 11500029 (Version 3)
Quarter: 2015Q4

REPORT INFORMATION
  Report Type: Spontaneous
  Country: DK (occurrence: DK)
  Receive Date: 20150914
  Receipt Date: 20151103
  Transmission Date: 20160304
  Serious: Yes (Death)
  Sender: FDA-Public Use
  Company Number: DK-EMD SERONO-E2B_80020297

PATIENT
  Age: 34 Year
  Sex: Female
  Weight: 66 kg

DRUGS (4)
  1. SUPREFACT [Suspect]
     Active Substance: BUSERELIN
     Indication: INFERTILITY
     Dosage: DOSIS: 0,5-0,3 MG 1 GANG DAGLIG. STYRKE: 1MG/ML. DER ER GIVET 24 INJEKTIONER
     Route: 058
     Dates: start: 20150520, end: 20150612
  2. OVITRELLE [Suspect]
     Active Substance: CHORIOGONADOTROPIN ALFA
     Indication: INFERTILITY
     Dosage: STYRKE: 250MG/0,5 ML
     Route: 058
  3. GONAL-F [Suspect]
     Active Substance: FOLLITROPIN
     Indication: INFERTILITY
     Dosage: DOSIS: 225-300 IE 1 GANG DAGLIG. STYRKE: 900IE/1,5 ML. DER ER GIVET 10 INJEKTIONER
     Route: 030
     Dates: start: 20150603, end: 20150612
  4. CRINONE [Suspect]
     Active Substance: PROGESTERONE
     Indication: INFERTILITY
     Dosage: STYRKE: 90MG/DOSIS
     Route: 067

REACTIONS (3)
  - Myocarditis [Fatal]
  - Hypoaesthesia [Not Recovered/Not Resolved]
  - Infectious thyroiditis [Fatal]

NARRATIVE: CASE EVENT DATE: 20150615
